FAERS Safety Report 7136096-6 (Version None)
Quarter: 2010Q4

REPORT INFORMATION
  Report Type: 
  Country: None (occurrence: None)
  Receive Date: 20101204
  Receipt Date: 20101119
  Transmission Date: 20110411
  Serious: Yes (Other)
  Sender: FDA-Public Use
  Company Number: DE-BAYER-201047927GPV

PATIENT

DRUGS (1)
  1. ULTRAVIST 370 [Suspect]

REACTIONS (2)
  - CHILLS [None]
  - TREMOR [None]
